FAERS Safety Report 7638204-7 (Version None)
Quarter: 2011Q3

REPORT INFORMATION
  Report Type: 
  Country: None (occurrence: None)
  Receive Date: 20110727
  Receipt Date: 20110708
  Transmission Date: 20111222
  Serious: No
  Sender: FDA-Public Use
  Company Number: US-B.I. PHARMACEUTICALS,INC./RIDGEFIELD-2011-BP-17380BP

PATIENT
  Sex: Female

DRUGS (4)
  1. LUMIGAN [Concomitant]
     Indication: GLAUCOMA
     Dates: start: 20010101
  2. AZOPT [Concomitant]
     Indication: GLAUCOMA
     Dates: start: 20110101
  3. SPIRIVA [Suspect]
     Indication: CHRONIC OBSTRUCTIVE PULMONARY DISEASE
     Dosage: 18 MCG
     Route: 055
     Dates: start: 20080101
  4. EFFEXOR [Concomitant]
     Indication: HOT FLUSH
     Dates: start: 20000101

REACTIONS (1)
  - DYSPNOEA [None]
